FAERS Safety Report 9220005 (Version 2)
Quarter: 2013Q2

REPORT INFORMATION
  Report Type: Spontaneous
  Country: IT (occurrence: IT)
  Receive Date: 20130409
  Receipt Date: 20130514
  Transmission Date: 20140414
  Serious: Yes (Hospitalization)
  Sender: FDA-Public Use
  Company Number: IT-ROCHE-1211244

PATIENT
  Age: 42 Year
  Sex: Female

DRUGS (4)
  1. RIVOTRIL [Suspect]
     Indication: INTENTIONAL SELF-INJURY
     Route: 048
     Dates: start: 20130329, end: 20130329
  2. MIRTAZAPINE [Suspect]
     Indication: INTENTIONAL SELF-INJURY
     Route: 048
     Dates: start: 20130329, end: 20130329
  3. SEROQUEL [Suspect]
     Indication: INTENTIONAL SELF-INJURY
     Route: 048
     Dates: start: 20130329, end: 20130329
  4. SEROQUEL [Suspect]
     Route: 048
     Dates: start: 20130329, end: 20130329

REACTIONS (4)
  - Hypotension [Recovered/Resolved]
  - Sopor [Recovered/Resolved]
  - Intentional self-injury [Recovered/Resolved]
  - Drug abuse [Unknown]
